FAERS Safety Report 7546346-X (Version None)
Quarter: 2011Q2

REPORT INFORMATION
  Report Type: 
  Country: None (occurrence: None)
  Receive Date: 20110614
  Receipt Date: 20081024
  Transmission Date: 20111010
  Serious: Yes (Death, Hospitalization, Other)
  Sender: FDA-Public Use
  Company Number: PHHY2008US14264

PATIENT
  Sex: Female

DRUGS (1)
  1. CLOZAPINE [Suspect]
     Indication: SCHIZOPHRENIA
     Route: 048
     Dates: start: 20080415

REACTIONS (7)
  - DEPRESSION [None]
  - HYPERTHERMIA [None]
  - RENAL FAILURE ACUTE [None]
  - FALL [None]
  - RHABDOMYOLYSIS [None]
  - MALAISE [None]
  - GASTROINTESTINAL SOUNDS ABNORMAL [None]
